FAERS Safety Report 13761943 (Version 1)
Quarter: 2017Q3

REPORT INFORMATION
  Report Type: Spontaneous
  Country: US (occurrence: US)
  Receive Date: 20170717
  Receipt Date: 20170717
  Transmission Date: 20171127
  Serious: No
  Sender: FDA-Public Use
  Company Number: None

PATIENT
  Age: 55 Year
  Sex: Female
  Weight: 58.51 kg

DRUGS (2)
  1. LEVOFLOXACIN TABLETS (NDC# 55111028130) [Suspect]
     Active Substance: LEVOFLOXACIN
     Indication: PNEUMONIA
     Dosage: DOSE - 1 PILL DAILY FOR 8 DAYS
     Route: 048
     Dates: start: 20170414, end: 20170419
  2. LEVOFLOXACIN TABLETS (NDC# 55111028130) [Suspect]
     Active Substance: LEVOFLOXACIN
     Indication: LOWER RESPIRATORY TRACT INFECTION
     Dosage: DOSE - 1 PILL DAILY FOR 8 DAYS
     Route: 048
     Dates: start: 20170414, end: 20170419

REACTIONS (9)
  - Musculoskeletal pain [None]
  - Tendon pain [None]
  - Grip strength decreased [None]
  - Loss of personal independence in daily activities [None]
  - Irritability [None]
  - Pain in extremity [None]
  - Crying [None]
  - Quality of life decreased [None]
  - Sleep disorder [None]

NARRATIVE: CASE EVENT DATE: 20170419
